FAERS Safety Report 8434727-1 (Version None)
Quarter: 2012Q2

REPORT INFORMATION
  Report Type: 
  Country: None (occurrence: None)
  Receive Date: 20120614
  Receipt Date: 20120606
  Transmission Date: 20120825
  Serious: Yes (Hospitalization)
  Sender: FDA-Public Use
  Company Number: CH-ELI_LILLY_AND_COMPANY-CH201206002156

PATIENT
  Sex: Male
  Weight: 80 kg

DRUGS (1)
  1. EFFIENT [Suspect]
     Indication: ANGINA PECTORIS
     Dosage: 60 MG, UNKNOWN
     Dates: start: 20101203, end: 20110103

REACTIONS (2)
  - ANGINA UNSTABLE [None]
  - CORONARY ARTERY RESTENOSIS [None]
